FAERS Safety Report 7983495-6 (Version None)
Quarter: 2011Q4

REPORT INFORMATION
  Report Type: 
  Country: None (occurrence: None)
  Receive Date: 20111215
  Receipt Date: 20111207
  Transmission Date: 20120403
  Serious: Yes (Disabling, Other)
  Sender: FDA-Public Use
  Company Number: US-ASTRAZENECA-2011SE73136

PATIENT
  Age: 65 Year
  Sex: Female
  Weight: 113.4 kg

DRUGS (6)
  1. SEROQUEL [Suspect]
     Indication: SLEEP DISORDER
     Route: 048
     Dates: start: 20030101
  2. SYMBICORT [Suspect]
     Route: 055
  3. SINGULAIR [Concomitant]
  4. SEROQUEL [Suspect]
     Indication: INSOMNIA
     Route: 048
     Dates: start: 20030101
  5. NEXIUM [Suspect]
     Route: 048
  6. ADVAIR DISKUS 100/50 [Concomitant]

REACTIONS (10)
  - CATARACT [None]
  - ASTHMA [None]
  - SLEEP APNOEA SYNDROME [None]
  - OFF LABEL USE [None]
  - MALAISE [None]
  - SPEECH DISORDER [None]
  - CHALAZION [None]
  - PNEUMONIA [None]
  - BLINDNESS [None]
  - AMNESIA [None]
